APPROVED DRUG PRODUCT: CLONIDINE HYDROCHLORIDE
Active Ingredient: CLONIDINE HYDROCHLORIDE
Strength: 5MG/10ML (0.5MG/ML)
Dosage Form/Route: INJECTABLE;INJECTION
Application: A200300 | Product #002 | TE Code: AP
Applicant: HIKMA FARMACEUTICA (PORTUGAL) SA
Approved: Jan 26, 2011 | RLD: No | RS: Yes | Type: RX